FAERS Safety Report 21098961 (Version 1)
Quarter: 2022Q3

REPORT INFORMATION
  Report Type: Report from Study
  Country: FR (occurrence: None)
  Receive Date: 20220719
  Receipt Date: 20220719
  Transmission Date: 20221026
  Serious: Yes (Other)
  Sender: FDA-Public Use
  Company Number: FR-Merck Healthcare KGaA-9336413

PATIENT
  Sex: Female

DRUGS (1)
  1. LEVOTHYROXINE [Suspect]
     Active Substance: LEVOTHYROXINE
     Indication: Product used for unknown indication

REACTIONS (9)
  - Blindness [Unknown]
  - Electric shock sensation [Unknown]
  - Pain [Unknown]
  - Alopecia [Unknown]
  - Nausea [Unknown]
  - Amnesia [Unknown]
  - Madarosis [Unknown]
  - Insomnia [Unknown]
  - Headache [Unknown]
